FAERS Safety Report 9436473 (Version 5)
Quarter: 2013Q4

REPORT INFORMATION
  Report Type: Report from Study
  Country: FR (occurrence: FR)
  Receive Date: 20130802
  Receipt Date: 20131009
  Transmission Date: 20140711
  Serious: Yes (Other)
  Sender: FDA-Public Use
  Company Number: FR-ROCHE-1241628

PATIENT
  Age: 70 Year
  Sex: Female
  Weight: 50 kg

DRUGS (9)
  1. VEMURAFENIB [Suspect]
     Indication: NEOPLASM MALIGNANT
     Dosage: MOST RECENT DOSE OF VEMURAFENIB PRIOR TO THE EVENT OF CUTANEOUS SQUAMOUS CELL CARCINOMA (LEFT NECK)
     Route: 048
     Dates: start: 20130501
  2. VEMURAFENIB [Suspect]
     Dosage: MOST RECENT DOSE OF VEMURAFENIB PRIOR TO THE EVENT OF CUTANEOUS SQUAMOUS CELL CARCINOMA (LEFT NECK)
     Route: 048
  3. CETUXIMAB [Suspect]
     Indication: NEOPLASM MALIGNANT
     Dosage: MOST RECENT DOSE OF CETUXIMAB PRIOR TO THE EVENT CUTANEOUS SQUAMOUS CELL CARCINOMA (LEFT NECK) WAS O
     Route: 042
     Dates: start: 20130430
  4. LEXOMIL [Concomitant]
     Route: 065
     Dates: start: 2003
  5. LOXEN [Concomitant]
     Route: 065
     Dates: start: 201301
  6. DEXERYL (FRANCE) [Concomitant]
     Route: 065
     Dates: start: 20130514
  7. DYNEXAN (FRANCE) [Concomitant]
     Route: 065
     Dates: start: 201305
  8. DERMALIBOUR [Concomitant]
     Route: 065
     Dates: start: 20130514, end: 201305
  9. IRBESARTAN [Concomitant]
     Route: 065
     Dates: start: 2013

REACTIONS (3)
  - Squamous cell carcinoma of skin [Recovered/Resolved]
  - Squamous cell carcinoma of skin [Recovered/Resolved]
  - Squamous cell carcinoma of skin [Recovered/Resolved]
